FAERS Safety Report 19267750 (Version 1)
Quarter: 2021Q2

REPORT INFORMATION
  Report Type: Spontaneous
  Country: PK (occurrence: PK)
  Receive Date: 20210518
  Receipt Date: 20210518
  Transmission Date: 20210717
  Serious: Yes (Other)
  Sender: FDA-Public Use
  Company Number: PK-VALIDUS PHARMACEUTICALS LLC-PK-2021VAL001187

PATIENT

DRUGS (1)
  1. CLAFORAN [Suspect]
     Active Substance: CEFOTAXIME SODIUM
     Indication: PROPHYLAXIS
     Dosage: 1 G, BID
     Route: 042

REACTIONS (1)
  - Wound infection [Unknown]
